FAERS Safety Report 9793024 (Version 2)
Quarter: 2014Q1

REPORT INFORMATION
  Report Type: Spontaneous
  Country: JP (occurrence: JP)
  Receive Date: 20140102
  Receipt Date: 20140123
  Transmission Date: 20141002
  Serious: Yes (Other)
  Sender: FDA-Public Use
  Company Number: JP-PFIZER INC-2013372412

PATIENT
  Age: 80 Year
  Sex: Male

DRUGS (8)
  1. ATARAX-P [Suspect]
     Dosage: 25 MG/DAY
     Route: 048
     Dates: start: 20100205
  2. LOXONIN [Suspect]
     Dosage: 180 MG/DAY
     Route: 048
     Dates: start: 20100205
  3. MEMARY [Concomitant]
     Dosage: 20 MG/DAY
  4. TALION [Concomitant]
     Dosage: 10 MG/DAY
  5. KETAS [Concomitant]
     Dosage: 20 MG/DAY
  6. BLOPRESS [Concomitant]
     Dosage: 8 MG/DAY
  7. NORVASC [Concomitant]
     Dosage: 2.5 MG/DAY
  8. ARICEPT [Concomitant]
     Dosage: 5 MG/DAY

REACTIONS (1)
  - Renal failure [Unknown]
